FAERS Safety Report 8187589 (Version 2)
Quarter: 2016Q1

REPORT INFORMATION
  Report Type: Spontaneous
  Country: US (occurrence: US)
  Receive Date: 20111018
  Receipt Date: 20160215
  Transmission Date: 20160526
  Serious: No
  Sender: FDA-Public Use
  Company Number: US-ASTRAZENECA-2010SE44502

PATIENT
  Age: 57 Year
  Sex: Female
  Weight: 53.5 kg

DRUGS (5)
  1. VALIUM [Concomitant]
     Active Substance: DIAZEPAM
  2. PROPOXIFEN [Concomitant]
  3. SYMBICORT [Suspect]
     Active Substance: BUDESONIDE\FORMOTEROL FUMARATE DIHYDRATE
     Indication: ASTHMA
     Dosage: 320 MICROGRAMS, TWO TIMES A DAY
     Route: 055
  4. SYMBICORT [Suspect]
     Active Substance: BUDESONIDE\FORMOTEROL FUMARATE DIHYDRATE
     Indication: ASTHMA
     Dosage: 160/4.5 MICROGRAMS, TWO TIMES A DAY
     Route: 055
  5. BABY ASPIRIN [Concomitant]
     Active Substance: ASPIRIN
     Indication: ATRIAL FIBRILLATION
     Dates: start: 20160108

REACTIONS (9)
  - Dizziness [Unknown]
  - Intentional product misuse [Unknown]
  - Dysphemia [Unknown]
  - Tremor [Unknown]
  - Drug dose omission [Unknown]
  - Balance disorder [Unknown]
  - Fatigue [Unknown]
  - Dyspnoea exertional [Unknown]
  - Dysphonia [Unknown]

NARRATIVE: CASE EVENT DATE: 2010
